FAERS Safety Report 7312019-1 (Version None)
Quarter: 2011Q1

REPORT INFORMATION
  Report Type: 
  Country: None (occurrence: None)
  Receive Date: 20110224
  Receipt Date: 20110222
  Transmission Date: 20110831
  Serious: Yes (Hospitalization)
  Sender: FDA-Public Use
  Company Number: US-ROXANE LABORATORIES, INC.-2011-RO-00210RO

PATIENT
  Sex: Female

DRUGS (11)
  1. LOSARTAN POTASSIUM [Concomitant]
  2. NITROGLYCERIN [Concomitant]
     Dates: start: 20100722
  3. PLAVIX [Concomitant]
  4. NORVASC [Concomitant]
  5. TRILEPTAL [Concomitant]
  6. LITHIUM CARBONATE [Suspect]
  7. ASPIRIN [Concomitant]
  8. SEROQUEL [Concomitant]
  9. APIXABAN [Suspect]
     Indication: THROMBOSIS PROPHYLAXIS
     Route: 048
     Dates: start: 20100621, end: 20101015
  10. PLACEBO [Suspect]
     Indication: THROMBOSIS PROPHYLAXIS
     Route: 048
     Dates: start: 20100621, end: 20101015
  11. PRILOSEC [Concomitant]

REACTIONS (1)
  - TOXICITY TO VARIOUS AGENTS [None]
